FAERS Safety Report 6086033-0 (Version None)
Quarter: 2009Q1

REPORT INFORMATION
  Report Type: 
  Country: None (occurrence: None)
  Receive Date: 20090220
  Receipt Date: 20090219
  Transmission Date: 20090719
  Serious: Yes (Hospitalization)
  Sender: FDA-Public Use
  Company Number: DE-WYE-G02123008

PATIENT
  Sex: Female
  Weight: 60 kg

DRUGS (7)
  1. LORAZEPAM [Suspect]
     Dosage: 10 TABLETS (OVERDOSE AMOUNT 10 MG)
     Route: 048
     Dates: start: 20080905, end: 20080905
  2. EDRONAX [Suspect]
     Dosage: MAX. 50 TABLETS (OVERDOSE AMOUNT MAX. 200 MG)
     Route: 048
     Dates: start: 20080905, end: 20080905
  3. IBUPROFEN TABLETS [Suspect]
     Dosage: TABLETS (OVERDOSE AMOUNT 1200 MG)
     Route: 048
     Dates: start: 20080905, end: 20080905
  4. RITALIN [Suspect]
     Dosage: 4 TABLETS (OVERDOSE AMOUNT UNKNOWN)
     Route: 048
     Dates: start: 20080905, end: 20080905
  5. VALORON [Suspect]
     Dosage: 5 TO 6 TABLETS (OVERDOSE AMOUNT UNKNOWN)
     Route: 048
     Dates: start: 20080905, end: 20080905
  6. CITALOPRAM HYDROBROMIDE [Suspect]
     Dosage: 10 TABLETS (OVERDOSE AMOUNT 200 MG)
     Route: 048
     Dates: start: 20080905, end: 20080905
  7. ACETAMINOPHEN [Suspect]
     Dosage: 4 TABLETS (OVERDOSE AMOUNT 2000 MG)
     Route: 048
     Dates: start: 20080905, end: 20080905

REACTIONS (6)
  - DIPLOPIA [None]
  - FATIGUE [None]
  - INTENTIONAL OVERDOSE [None]
  - NYSTAGMUS [None]
  - SOMNOLENCE [None]
  - SUICIDE ATTEMPT [None]
